FAERS Safety Report 9324470 (Version 1)
Quarter: 2013Q2

REPORT INFORMATION
  Report Type: Spontaneous
  Country: BR (occurrence: BR)
  Receive Date: 20130603
  Receipt Date: 20130603
  Transmission Date: 20140414
  Serious: Yes (Death, Hospitalization, Other)
  Sender: FDA-Public Use
  Company Number: BR-ASTRAZENECA-2013SE38240

PATIENT
  Age: 27368 Day
  Sex: Female

DRUGS (4)
  1. SYMBICORT TURBUHALER [Suspect]
     Route: 055
  2. ATACAND [Suspect]
     Route: 048
  3. NEXIUM [Suspect]
     Route: 048
  4. CRESTOR [Suspect]
     Route: 048

REACTIONS (3)
  - Septic shock [Fatal]
  - Pneumonia [Fatal]
  - Cardiac failure [Fatal]
